FAERS Safety Report 24351018 (Version 1)
Quarter: 2024Q3

REPORT INFORMATION
  Report Type: Report from Study
  Country: PT (occurrence: PT)
  Receive Date: 20240923
  Receipt Date: 20240923
  Transmission Date: 20241017
  Serious: No
  Sender: ROCHE
  Company Number: PT-ROCHE-2883969

PATIENT
  Age: 57 Year
  Sex: Female
  Weight: 62.0 kg

DRUGS (39)
  1. TRASTUZUMAB [Suspect]
     Active Substance: TRASTUZUMAB
     Indication: HER2 positive breast cancer
     Dosage: MOST RECENT DOSE PRIOR TO THE EVENT: 07/JAN/2021
     Route: 041
     Dates: start: 20190308, end: 20190308
  2. TRASTUZUMAB [Suspect]
     Active Substance: TRASTUZUMAB
     Route: 041
     Dates: start: 20190408, end: 20190704
  3. CAPECITABINE [Suspect]
     Active Substance: CAPECITABINE
     Indication: HER2 positive breast cancer
     Dosage: TWICE DAILY FOR 2 WEEKS
     Route: 048
     Dates: start: 20210201, end: 20210214
  4. CAPECITABINE [Suspect]
     Active Substance: CAPECITABINE
     Dosage: TWICE DAILY FOR 2 WEEKS
     Route: 048
     Dates: start: 20210318, end: 20210421
  5. CAPECITABINE [Suspect]
     Active Substance: CAPECITABINE
     Dosage: TWICE DAILY FOR 2 WEEKS
     Route: 048
     Dates: start: 20210430, end: 20210614
  6. ADO-TRASTUZUMAB EMTANSINE [Suspect]
     Active Substance: ADO-TRASTUZUMAB EMTANSINE
     Indication: HER2 positive breast cancer
     Route: 042
     Dates: start: 20190726, end: 20201119
  7. PERTUZUMAB [Suspect]
     Active Substance: PERTUZUMAB
     Indication: HER2 positive breast cancer
     Dosage: MOST RECENT DOSE PRIOR TO THE EVENT: 08/APR/2019
     Route: 042
     Dates: start: 20190308, end: 20190308
  8. PERTUZUMAB [Suspect]
     Active Substance: PERTUZUMAB
     Route: 042
     Dates: start: 20190408, end: 20190704
  9. DOCETAXEL [Suspect]
     Active Substance: DOCETAXEL\DOCETAXEL ANHYDROUS
     Indication: HER2 positive breast cancer
     Dosage: DATE OF MOST RECENT DOSE: 04/JUL/2019
     Route: 042
     Dates: start: 20190308
  10. TRASTUZUMAB [Suspect]
     Active Substance: TRASTUZUMAB
     Indication: HER2 positive breast cancer
     Route: 058
     Dates: start: 20210107, end: 20220203
  11. RIVOTRIL [Concomitant]
     Active Substance: CLONAZEPAM
     Dosage: ONGOING = CHECKED
  12. ATORVASTATIN [Concomitant]
     Active Substance: ATORVASTATIN
     Dosage: ONGOING = CHECKED
  13. TRAZODONE [Concomitant]
     Active Substance: TRAZODONE HYDROCHLORIDE
     Dosage: ONGOING = CHECKED
  14. NEUROBION [Concomitant]
     Active Substance: CYANOCOBALAMIN\PYRIDOXINE\THIAMINE
     Indication: Neuropathy peripheral
     Dosage: ONGOING = CHECKED
     Dates: start: 20210429
  15. FLUCONAZOLE [Concomitant]
     Active Substance: FLUCONAZOLE
     Indication: Onycholysis
     Dosage: ONGOING = NOT CHECKED
     Dates: start: 20210429, end: 20210515
  16. KETOPROFEN [Concomitant]
     Active Substance: KETOPROFEN
     Dosage: ONGOING = CHECKED
     Dates: start: 20200513
  17. ZOLEDRONIC ACID [Concomitant]
     Active Substance: ZOLEDRONIC ACID
     Dosage: ONGOING = CHECKED
     Dates: start: 20200401
  18. BISOPROLOL [Concomitant]
     Active Substance: BISOPROLOL\BISOPROLOL FUMARATE
     Dosage: ONGOING = CHECKED
  19. ACETAMINOPHEN\THIOCOLCHICOSIDE [Concomitant]
     Active Substance: ACETAMINOPHEN\THIOCOLCHICOSIDE
     Dosage: ONGOING = CHECKED
     Dates: start: 20200513
  20. FUSIDIC ACID [Concomitant]
     Active Substance: FUSIDIC ACID
     Indication: Onycholysis
     Dosage: ONGOING = NOT CHECKED
     Dates: start: 20210429, end: 20210524
  21. LOPERAMIDE [Concomitant]
     Active Substance: LOPERAMIDE
     Dosage: ONGOING = CHECKED
     Dates: start: 20210129
  22. LEVETIRACETAM [Concomitant]
     Active Substance: LEVETIRACETAM
     Dosage: ONGOING = CHECKED
     Dates: start: 20210129
  23. DIAZEPAM [Concomitant]
     Active Substance: DIAZEPAM
     Dosage: ONGOING = CHECKED
     Dates: start: 20210107
  24. ESCITALOPRAM [Concomitant]
     Active Substance: ESCITALOPRAM OXALATE
     Dosage: ONGOING = CHECKED
     Dates: start: 20180305
  25. HYDROXYZINE [Concomitant]
     Active Substance: HYDROXYZINE HYDROCHLORIDE
     Dosage: ONGOING = CHECKED
     Dates: start: 20190726
  26. DEXAMETHASONE [Concomitant]
     Active Substance: DEXAMETHASONE
     Dosage: ONGOING = CHECKED
     Dates: start: 20201210
  27. PREDNISOLONE [Concomitant]
     Active Substance: PREDNISOLONE
     Dosage: ONGOING = CHECKED
     Dates: start: 20190429
  28. QUETIAPINE [Concomitant]
     Active Substance: QUETIAPINE
     Dosage: ONGOING = CHECKED
     Dates: start: 20210107
  29. DESLORATADINE [Concomitant]
     Active Substance: DESLORATADINE
     Dosage: ONGOING = CHECKED
  30. LACTULOSE [Concomitant]
     Active Substance: LACTULOSE
     Dosage: ONGOING = CHECKED
  31. FUROSEMIDE [Concomitant]
     Active Substance: FUROSEMIDE
     Dosage: ONGOING = CHECKED
     Dates: start: 20190429
  32. METOCLOPRAMIDE [Concomitant]
     Active Substance: METOCLOPRAMIDE
     Dosage: ONGOING = CHECKED
     Dates: start: 20190521
  33. METOCLOPRAMIDE [Concomitant]
     Active Substance: METOCLOPRAMIDE
     Dosage: ONGOING = CHECKED
     Dates: start: 20210211
  34. IRBESARTAN [Concomitant]
     Active Substance: IRBESARTAN
     Dosage: ONGOING = CHECKED
  35. TRAMADOL [Concomitant]
     Active Substance: TRAMADOL\TRAMADOL HYDROCHLORIDE
     Dosage: ONGOING = NOT CHECKED
     Dates: start: 20190329
  36. CLEMASTINE [Concomitant]
     Active Substance: CLEMASTINE
     Dosage: ONGOING = CHECKED
     Dates: start: 20190308
  37. NYSTATIN [Concomitant]
     Active Substance: NYSTATIN
     Dosage: ONGOING = CHECKED
     Dates: start: 20190521
  38. OMEPRAZOLE [Concomitant]
     Active Substance: OMEPRAZOLE
     Dosage: ONGOING = CHECKED
  39. METHYLPREDNISOLONE [Concomitant]
     Active Substance: METHYLPREDNISOLONE
     Dosage: ONGOING = CHECKED
     Dates: start: 20190308

REACTIONS (3)
  - Onycholysis [Recovered/Resolved]
  - Neuropathy peripheral [Recovered/Resolved]
  - Palmar-plantar erythrodysaesthesia syndrome [Recovered/Resolved]

NARRATIVE: CASE EVENT DATE: 20210429
